FAERS Safety Report 6756911-5 (Version None)
Quarter: 2010Q2

REPORT INFORMATION
  Report Type: 
  Country: None (occurrence: None)
  Receive Date: 20100604
  Receipt Date: 20100602
  Transmission Date: 20101027
  Serious: Yes (Death, Hospitalization)
  Sender: FDA-Public Use
  Company Number: PHHO2008DE12119

PATIENT
  Sex: Male

DRUGS (9)
  1. SANDIMMUNE [Suspect]
     Indication: RENAL TRANSPLANT
  2. NO TREATMENT RECEIVED NOMED [Suspect]
     Indication: RENAL TRANSPLANT
     Dosage: UNK
  3. MERONEM [Suspect]
  4. CASPOFUNGIN ACETATE [Suspect]
  5. RIFAMPICIN [Suspect]
  6. CARBIMAZOLE [Suspect]
  7. ISONIAZID [Suspect]
  8. DECORTIN [Concomitant]
     Indication: RENAL TRANSPLANT
     Dosage: UNK
     Route: 048
     Dates: start: 20080327, end: 20080626
  9. TACROLIMUS [Concomitant]
     Indication: RENAL TRANSPLANT
     Dosage: UNK
     Dates: start: 20080709

REACTIONS (8)
  - CHOLANGITIS [None]
  - CHOLESTASIS [None]
  - GASTROINTESTINAL HAEMORRHAGE [None]
  - HEPATIC FAILURE [None]
  - HEPATOTOXICITY [None]
  - PNEUMONIA [None]
  - SEPSIS [None]
  - VANISHING BILE DUCT SYNDROME [None]
